FAERS Safety Report 9198534 (Version 2)
Quarter: 2013Q2

REPORT INFORMATION
  Report Type: Report from Study
  Country: BE (occurrence: BE)
  Receive Date: 20130329
  Receipt Date: 20130425
  Transmission Date: 20140414
  Serious: Yes (Death, Hospitalization, Other)
  Sender: FDA-Public Use
  Company Number: PHHY2013BE030702

PATIENT
  Age: 74 Year
  Sex: Male

DRUGS (10)
  1. ACLASTA [Suspect]
     Indication: OSTEOPOROSIS
     Dosage: 5 MG, YEARLY
     Route: 042
     Dates: start: 20100717
  2. ACLASTA [Suspect]
     Dosage: 5 MG, YEARLY
     Route: 042
     Dates: start: 20110712
  3. ACLASTA [Suspect]
     Dosage: 5 MG, YEARLY
     Route: 042
     Dates: start: 20120801
  4. CORTICOSTEROIDS [Concomitant]
     Indication: RHEUMATIC DISORDER
     Dosage: UNK
  5. ENBREL [Concomitant]
     Indication: RHEUMATOID ARTHRITIS
     Dosage: UNK
     Dates: start: 2012, end: 201206
  6. TUMOR NECROSIS FACTOR ALPHA (TNF-) INHIBITORS [Concomitant]
     Indication: RHEUMATIC DISORDER
     Dosage: UNK
     Dates: start: 2012
  7. PREDNISONE [Concomitant]
     Indication: RHEUMATOID ARTHRITIS
     Dosage: UNK
  8. METHOTREXATE [Concomitant]
     Indication: RHEUMATOID ARTHRITIS
     Dosage: UNK
     Dates: start: 2010
  9. ROACTEMRA [Concomitant]
     Indication: RHEUMATOID ARTHRITIS
     Dosage: UNK
     Dates: start: 201206
  10. MEDROL [Concomitant]
     Indication: RHEUMATOID ARTHRITIS
     Dosage: UNK

REACTIONS (16)
  - Systemic mycosis [Fatal]
  - Fall [Unknown]
  - Scedosporium infection [Unknown]
  - Hip fracture [Unknown]
  - Respiratory failure [Unknown]
  - Respiratory distress [Unknown]
  - Cardiac failure [Unknown]
  - Staphylococcal infection [Unknown]
  - Pneumonia [Unknown]
  - Post procedural pneumonia [Unknown]
  - Rash maculo-papular [Unknown]
  - Blister [Unknown]
  - Impaired healing [Unknown]
  - Injury [Unknown]
  - Renal failure [Unknown]
  - Pyrexia [Unknown]
